FAERS Safety Report 25243863 (Version 2)
Quarter: 2025Q2

REPORT INFORMATION
  Report Type: Spontaneous
  Country: US (occurrence: US)
  Receive Date: 20250428
  Receipt Date: 20250428
  Transmission Date: 20250716
  Serious: No
  Sender: ASTELLAS
  Company Number: US-ASTELLAS-2025-AER-007308

PATIENT
  Age: 80 Year
  Sex: Female

DRUGS (7)
  1. IZERVAY [Suspect]
     Active Substance: AVACINCAPTAD PEGOL SODIUM
     Indication: Macular degeneration
     Dates: start: 20241204
  2. IZERVAY [Suspect]
     Active Substance: AVACINCAPTAD PEGOL SODIUM
  3. IZERVAY [Suspect]
     Active Substance: AVACINCAPTAD PEGOL SODIUM
  4. IZERVAY [Suspect]
     Active Substance: AVACINCAPTAD PEGOL SODIUM
  5. IZERVAY [Suspect]
     Active Substance: AVACINCAPTAD PEGOL SODIUM
  6. IZERVAY [Suspect]
     Active Substance: AVACINCAPTAD PEGOL SODIUM
  7. IZERVAY [Suspect]
     Active Substance: AVACINCAPTAD PEGOL SODIUM

REACTIONS (1)
  - Product storage error [Unknown]
